FAERS Safety Report 4388615-0 (Version None)
Quarter: 2004Q2

REPORT INFORMATION
  Report Type: 
  Country: None (occurrence: None)
  Receive Date: 20040624
  Receipt Date: 20040617
  Transmission Date: 20050107
  Serious: Yes (Hospitalization)
  Sender: FDA-Public Use
  Company Number: SE-JNJFOC-20040604995

PATIENT
  Age: 11 Year
  Sex: Female

DRUGS (3)
  1. IBUPROFEN [Suspect]
     Indication: ABDOMINAL PAIN
     Dosage: 200 MG, ORAL
     Route: 048
     Dates: start: 20031201, end: 20040201
  2. IBUPROFEN [Suspect]
     Indication: PYREXIA
     Dosage: 200 MG, ORAL
     Route: 048
     Dates: start: 20031201, end: 20040201
  3. ALVEDON (PARACETAMOL) [Concomitant]

REACTIONS (1)
  - NEPHRITIS [None]
